FAERS Safety Report 5801978-1 (Version None)
Quarter: 2008Q3

REPORT INFORMATION
  Report Type: 
  Country: None (occurrence: None)
  Receive Date: 20080702
  Receipt Date: 20080625
  Transmission Date: 20090109
  Serious: Yes (Hospitalization)
  Sender: FDA-Public Use
  Company Number: 2008SP012594

PATIENT
  Age: 65 Year
  Sex: Male
  Weight: 110 kg

DRUGS (13)
  1. TEMOZOLOMIDE [Suspect]
     Indication: GLIOBLASTOMA MULTIFORME
     Dosage: 470 MG; QD; PO
     Route: 048
     Dates: start: 20080529, end: 20080602
  2. BEVACIZUMAB [Suspect]
     Indication: GLIOBLASTOMA MULTIFORME
     Dosage: 1125 MG
     Dates: start: 20080529, end: 20080529
  3. BEVACIZUMAB [Suspect]
     Indication: GLIOBLASTOMA MULTIFORME
     Dosage: 1125 MG
     Dates: start: 20080612, end: 20080612
  4. LASIX [Concomitant]
  5. DECADRON [Concomitant]
  6. NEXIUM [Concomitant]
  7. MULTI-VITAMINS [Concomitant]
  8. SPIRONOLACTONE [Concomitant]
  9. FLUCONAZOLE [Concomitant]
  10. LEVAQUIN [Concomitant]
  11. TYELONOL [Concomitant]
  12. FLOMAX [Concomitant]
  13. TYLENOL [Concomitant]

REACTIONS (18)
  - ALPHA HAEMOLYTIC STREPTOCOCCAL INFECTION [None]
  - ANAL ABSCESS [None]
  - ANAL ULCER [None]
  - APPENDIX DISORDER [None]
  - BACTERIA URINE IDENTIFIED [None]
  - CORYNEBACTERIUM INFECTION [None]
  - DIZZINESS [None]
  - FATIGUE [None]
  - FLUCTUANCE [None]
  - GAIT DISTURBANCE [None]
  - HEADACHE [None]
  - HEART RATE INCREASED [None]
  - INFECTED SKIN ULCER [None]
  - MEMORY IMPAIRMENT [None]
  - PURULENT DISCHARGE [None]
  - STAPHYLOCOCCAL INFECTION [None]
  - TEMPERATURE INTOLERANCE [None]
  - WOUND INFECTION BACTERIAL [None]
